FAERS Safety Report 13747082 (Version 2)
Quarter: 2017Q3

REPORT INFORMATION
  Report Type: Report from Study
  Country: US (occurrence: US)
  Receive Date: 20170712
  Receipt Date: 20170721
  Transmission Date: 20171127
  Serious: Yes (Hospitalization)
  Sender: FDA-Public Use
  Company Number: US-VERTEX PHARMACEUTICALS-2017-003611

PATIENT
  Age: 24 Year
  Sex: Female

DRUGS (19)
  1. CREON [Concomitant]
     Active Substance: PANCRELIPASE AMYLASE\PANCRELIPASE LIPASE\PANCRELIPASE PROTEASE
     Dosage: TAKE 5 CAPS WITH MEAL, 3 WITH SNACKS
  2. PULMOZYME [Concomitant]
     Active Substance: DORNASE ALFA
     Dosage: 1 MG/ML INHALATION SOLUTION, INHALE 2.5ML DAILY
     Route: 055
     Dates: start: 20150722
  3. FERROUS GLUCONATE [Concomitant]
     Active Substance: FERROUS GLUCONATE
     Dosage: TAKE ONE TABLET BY MOUTH THREE TIMES DAILY
     Route: 048
  4. NAPROXEN. [Concomitant]
     Active Substance: NAPROXEN
     Dosage: UNK
     Dates: start: 20170722
  5. VITAMIN D3 [Concomitant]
     Active Substance: CHOLECALCIFEROL
     Dosage: TAKE 1 CAPSULE DAILY WITH MEALS AND ENZYMES
     Route: 048
     Dates: start: 20160321
  6. CAYSTON [Concomitant]
     Active Substance: AZTREONAM
     Dosage: INHALE 1 VIAL 3 TIMES DAILY
     Dates: start: 20170722
  7. CETIRIZINE [Concomitant]
     Active Substance: CETIRIZINE HYDROCHLORIDE
     Dosage: 10 MG, QD
     Route: 048
  8. COLISTIMETHATE SODIUM. [Concomitant]
     Active Substance: COLISTIMETHATE SODIUM
     Dosage: DILUTE I VIAL WITH 3 ML STERILE WATER
  9. MEPHYTON [Concomitant]
     Active Substance: PHYTONADIONE
     Dosage: TAKE ONE TABLET BY MOUTH DAILY
  10. PREDNISONE. [Concomitant]
     Active Substance: PREDNISONE
     Dosage: TAKE ONE TABLET BY MOUTH DAILY
     Dates: start: 20150722
  11. ORKAMBI [Suspect]
     Active Substance: IVACAFTOR\LUMACAFTOR
     Indication: CYSTIC FIBROSIS
     Dosage: 2 DF(200-125 MG, EACH), BID
     Route: 048
     Dates: start: 20150911
  12. AZITHROMYCIN ANHYDROUS. [Concomitant]
     Active Substance: AZITHROMYCIN ANHYDROUS
     Dosage: TAKE ONE TABLET BY MOUTH
     Route: 048
     Dates: start: 20150722
  13. HYPERSAL [Concomitant]
     Dosage: USE I VIAL IN NEBULIZER TWICE DAILY
  14. NASONEX [Concomitant]
     Active Substance: MOMETASONE FUROATE
     Dosage: TWO SPRAYS IN EACH NOSTRIL ONCE
     Dates: start: 20170722
  15. ESOMEPRAZOLE MAGNESIUM. [Concomitant]
     Active Substance: ESOMEPRAZOLE MAGNESIUM
     Dosage: 40 MG ORAL CAPSULE DELAYED RELEASE
     Route: 048
  16. ADVAIR HFA [Concomitant]
     Active Substance: FLUTICASONE PROPIONATE\SALMETEROL XINAFOATE
     Dosage: TAKE 1 PUFF BY INHALATION TWO TIMES
     Dates: start: 20170722
  17. ALBUTEROL SULFATE. [Concomitant]
     Active Substance: ALBUTEROL SULFATE
     Dosage: USE 1 VIAL TWO TIMES A DAY
     Route: 055
     Dates: start: 20150722
  18. POLYETHYLENE GLYCOL 3350. [Concomitant]
     Active Substance: POLYETHYLENE GLYCOL 3350
     Dosage: TAKE 1 SCOOP DAILY
     Dates: start: 20150722
  19. VITAMIN A [Concomitant]
     Active Substance: VITAMIN A
     Dosage: TAKE 2 TABLET DAILY WITH MEALS
     Dates: start: 20161214

REACTIONS (3)
  - Asthma [Unknown]
  - Respiratory tract congestion [Recovered/Resolved]
  - Pyrexia [Recovered/Resolved]

NARRATIVE: CASE EVENT DATE: 201706
